FAERS Safety Report 9027939 (Version 1)
Quarter: 2013Q1

REPORT INFORMATION
  Report Type: Spontaneous
  Country: US (occurrence: US)
  Receive Date: 20130123
  Receipt Date: 20130123
  Transmission Date: 20140127
  Serious: Yes (Death, Other)
  Sender: FDA-Public Use
  Company Number: US-GENZYME-CAMP-1002689

PATIENT
  Sex: 0

DRUGS (2)
  1. CAMPATH [Suspect]
     Indication: NEUROMYELITIS OPTICA
     Dosage: 12 MG, QD FOR 5 DAYS
     Route: 042
     Dates: start: 201105
  2. CAMPATH [Suspect]
     Dosage: 12 MG, QD FOR 5 DAYS
     Route: 065
     Dates: start: 2012, end: 2012

REACTIONS (3)
  - Neuromyelitis optica [Unknown]
  - Urosepsis [Fatal]
  - Off label use [Unknown]
